FAERS Safety Report 7295913-X (Version None)
Quarter: 2011Q1

REPORT INFORMATION
  Report Type: 
  Country: None (occurrence: None)
  Receive Date: 20110211
  Receipt Date: 20110211
  Transmission Date: 20110831
  Serious: Yes (Life-Threatening, Hospitalization, Other)
  Sender: FDA-Public Use
  Company Number: None

PATIENT
  Age: 63 Year
  Sex: Female
  Weight: 50 kg

DRUGS (14)
  1. INVEGA SUSTENNA [Suspect]
     Indication: SUICIDAL BEHAVIOUR
     Dosage: TOO LONG
     Dates: start: 20100401
  2. INVEGA SUSTENNA [Suspect]
     Indication: BIPOLAR DISORDER
     Dosage: TOO LONG
     Dates: start: 20100401
  3. OTC PAIN MEDICATIONS: IBUPROFEN [Concomitant]
  4. MEDICAL CANNIBIS FOR PAIN [Concomitant]
  5. MASSIVE DOSES OF VITAMINS [Concomitant]
  6. SAMPLE OF INVEGA SUSTENNA [Concomitant]
  7. ACETAMINOPHEN [Concomitant]
  8. VALPROIC ACID [Concomitant]
  9. RISPERDAL [Suspect]
     Indication: BIPOLAR DISORDER
     Dosage: WAY TOO HIGH
     Dates: start: 20100401
  10. RISPERDAL [Suspect]
     Indication: SUICIDAL BEHAVIOUR
     Dosage: WAY TOO HIGH
     Dates: start: 20100401
  11. VICODIN [Concomitant]
  12. HERBAL SUPPLEMENTS FOR CONGNITIVE SAFETY AND OSTEO-ARTHRITIC PAIN [Concomitant]
  13. DIMETHYL SULFOXIDE [Concomitant]
  14. TRAZODONE HCL [Concomitant]

REACTIONS (11)
  - NIGHTMARE [None]
  - ARTHRALGIA [None]
  - SLEEP DISORDER [None]
  - MUSCULOSKELETAL DISORDER [None]
  - DYSPHAGIA [None]
  - DEMENTIA [None]
  - ABASIA [None]
  - NECK PAIN [None]
  - SUICIDAL BEHAVIOUR [None]
  - PAIN IN EXTREMITY [None]
  - PARANOIA [None]
